FAERS Safety Report 18752081 (Version 2)
Quarter: 2021Q1

REPORT INFORMATION
  Report Type: Spontaneous
  Country: US (occurrence: US)
  Receive Date: 20210118
  Receipt Date: 20210126
  Transmission Date: 20210419
  Serious: No
  Sender: FDA-Public Use
  Company Number: US-BEH-2021127201

PATIENT
  Sex: Female

DRUGS (2)
  1. PRIVIGEN [Suspect]
     Active Substance: HUMAN IMMUNOGLOBULIN G
     Indication: DERMATOMYOSITIS
     Dosage: 70 GRAM, 2 DAYS EVERY 4 WEEKS
     Route: 042
     Dates: start: 20190822
  2. PRIVIGEN [Suspect]
     Active Substance: HUMAN IMMUNOGLOBULIN G
     Dosage: 5 GRAM, 2 DAYS EVERY 4 WEEKS
     Route: 042
     Dates: start: 20190822

REACTIONS (5)
  - Unevaluable event [Unknown]
  - Off label use [Unknown]
  - Insurance issue [Unknown]
  - Therapy cessation [Unknown]
  - No adverse event [Unknown]
